FAERS Safety Report 9747034 (Version 2)
Quarter: 2013Q4

REPORT INFORMATION
  Report Type: Report from Study
  Country: HU (occurrence: HU)
  Receive Date: 20131211
  Receipt Date: 20131211
  Transmission Date: 20140711
  Serious: Yes (Death)
  Sender: FDA-Public Use
  Company Number: HU-BAXTER-2013BAX046820

PATIENT
  Age: 72 Year
  Sex: Male

DRUGS (4)
  1. ENDOXAN 1G POR OLDATOS INJEKCI?HOZ [Suspect]
     Indication: BURKITT^S LYMPHOMA
     Route: 065
  2. DOXORUBICIN [Suspect]
     Indication: BURKITT^S LYMPHOMA
     Route: 065
  3. VINCRISTINE [Suspect]
     Indication: BURKITT^S LYMPHOMA
     Route: 065
  4. PREDNISONE [Suspect]
     Indication: BURKITT^S LYMPHOMA
     Route: 065

REACTIONS (1)
  - Bronchial carcinoma [Fatal]
